FAERS Safety Report 11829733 (Version 1)
Quarter: 2015Q4

REPORT INFORMATION
  Report Type: Report from Study
  Country: DE (occurrence: DE)
  Receive Date: 20151212
  Receipt Date: 20151212
  Transmission Date: 20160305
  Serious: Yes (Death)
  Sender: FDA-Public Use
  Company Number: DE-ASTRAZENECA-2015SF21350

PATIENT
  Sex: Male
  Weight: 80 kg

DRUGS (2)
  1. EKLIRA [Suspect]
     Active Substance: ACLIDINIUM BROMIDE
     Indication: CHRONIC OBSTRUCTIVE PULMONARY DISEASE
     Dosage: 2X1
     Route: 055
     Dates: start: 20150327, end: 20150330
  2. FORMOTEROL FUMARATE DIHYDRATE [Concomitant]
     Active Substance: FORMOTEROL FUMARATE DIHYDRATE
     Indication: CHRONIC OBSTRUCTIVE PULMONARY DISEASE
     Dosage: TWO TIMES A DAY
     Route: 055
     Dates: start: 20150327, end: 20150330

REACTIONS (1)
  - Lung neoplasm malignant [Fatal]
